FAERS Safety Report 6383262-3 (Version None)
Quarter: 2009Q3

REPORT INFORMATION
  Report Type: 
  Country: None (occurrence: None)
  Receive Date: 20090929
  Receipt Date: 20090915
  Transmission Date: 20100115
  Serious: Yes (Other)
  Sender: FDA-Public Use
  Company Number: 2009AM000262

PATIENT
  Age: 51 Year
  Sex: Female
  Weight: 76.2043 kg

DRUGS (6)
  1. SYMLIN [Suspect]
     Indication: WEIGHT DECREASED
     Dosage: 45 MCG;TID;SC; 30 MCG; TID; SC; 15 MCG; TID; SC
     Route: 058
     Dates: start: 20090101, end: 20090101
  2. SYMLIN [Suspect]
     Indication: WEIGHT DECREASED
     Dosage: 45 MCG;TID;SC; 30 MCG; TID; SC; 15 MCG; TID; SC
     Route: 058
     Dates: start: 20090101, end: 20090101
  3. SYMLIN [Suspect]
     Indication: WEIGHT DECREASED
     Dosage: 45 MCG;TID;SC; 30 MCG; TID; SC; 15 MCG; TID; SC
     Route: 058
     Dates: start: 20090823
  4. DIOVAN [Concomitant]
  5. SANTURA [Concomitant]
  6. THYROID TAB [Concomitant]

REACTIONS (6)
  - FEELING ABNORMAL [None]
  - HYPOGLYCAEMIA [None]
  - LOSS OF CONSCIOUSNESS [None]
  - PRESYNCOPE [None]
  - TREMOR [None]
  - VISUAL IMPAIRMENT [None]
